FAERS Safety Report 6552130-6 (Version None)
Quarter: 2010Q1

REPORT INFORMATION
  Report Type: 
  Country: None (occurrence: None)
  Receive Date: 20100126
  Receipt Date: 20100115
  Transmission Date: 20100710
  Serious: Yes (Other)
  Sender: FDA-Public Use
  Company Number: BE-JNJFOC-20100106621

PATIENT
  Sex: Male

DRUGS (6)
  1. STELARA [Suspect]
     Indication: PSORIATIC ARTHROPATHY
     Dosage: 3RD DOSE
     Route: 058
  2. STELARA [Suspect]
     Dosage: 2ND DOSE
     Route: 058
  3. STELARA [Suspect]
     Dosage: 1ST DOSE
     Route: 058
  4. STELARA [Suspect]
     Indication: PSORIASIS
     Dosage: 1ST DOSE
     Route: 058
  5. STELARA [Suspect]
     Dosage: 2ND DOSE
     Route: 058
  6. STELARA [Suspect]
     Dosage: 3RD DOSE
     Route: 058

REACTIONS (2)
  - PNEUMONIA [None]
  - THERAPEUTIC RESPONSE DECREASED [None]
